FAERS Safety Report 5193667-4 (Version None)
Quarter: 2006Q4

REPORT INFORMATION
  Report Type: 
  Country: None (occurrence: None)
  Receive Date: 20061221
  Receipt Date: 20061214
  Transmission Date: 20070319
  Serious: No
  Sender: FDA-Public Use
  Company Number: S06-USA-04769-01

PATIENT
  Age: 86 Year
  Sex: Female

DRUGS (16)
  1. NAMENDA [Suspect]
     Indication: DEMENTIA ALZHEIMER'S TYPE
     Dosage: 15  MG QD PO
     Route: 048
     Dates: start: 20061105
  2. NAMENDA [Suspect]
     Indication: DEMENTIA ALZHEIMER'S TYPE
     Dosage: 5 MG QD PO
     Route: 048
     Dates: start: 20061022, end: 20061028
  3. NAMENDA [Suspect]
     Indication: DEMENTIA ALZHEIMER'S TYPE
     Dosage: 5 MG BID PO
     Route: 048
     Dates: start: 20061029, end: 20061104
  4. WARFARIN SODIUM [Concomitant]
  5. ATENOLOL [Concomitant]
  6. LEVOTHYROXINE SODIUM [Concomitant]
  7. ZOLOFT [Concomitant]
  8. DILTIAZEM HCL [Concomitant]
  9. HYDROCHLOROTHIAZIDE [Concomitant]
  10. DIGOXIN [Concomitant]
  11. VICODIN [Concomitant]
  12. NITROGLYCERIN [Concomitant]
  13. SALSALATE [Concomitant]
  14. SENNA [Concomitant]
  15. DOCUSATE [Concomitant]
  16. POTASSIUM CHLORIDE [Concomitant]

REACTIONS (3)
  - HAEMORRHOIDAL HAEMORRHAGE [None]
  - RECTAL HAEMORRHAGE [None]
  - VAGINAL HAEMORRHAGE [None]
